FAERS Safety Report 14424522 (Version 1)
Quarter: 2018Q1

REPORT INFORMATION
  Report Type: Spontaneous
  Country: US (occurrence: US)
  Receive Date: 20180123
  Receipt Date: 20180123
  Transmission Date: 20180509
  Serious: No
  Sender: FDA-Public Use
  Company Number: US-PFIZER INC-2018026402

PATIENT
  Sex: Female

DRUGS (6)
  1. TOLTERODINE [Suspect]
     Active Substance: TOLTERODINE
     Indication: URINARY INCONTINENCE
  2. OMEPRAZOLE. [Concomitant]
     Active Substance: OMEPRAZOLE
     Indication: DYSPEPSIA
     Dosage: 20 MG, 1X/DAY (20MG CAPSULE ONCE A DAY BY MOUTH)
     Route: 048
  3. ASPIRIN. [Concomitant]
     Active Substance: ASPIRIN
     Indication: ANTICOAGULANT THERAPY
     Dosage: UNK UNK, 1X/DAY (TABLET ONCE A DAY BY MOUTH)
     Route: 048
  4. PREMARIN [Concomitant]
     Active Substance: ESTROGENS, CONJUGATED
     Indication: MOOD SWINGS
     Dosage: 0.625 MG, 1X/DAY (0.625MG TABLET ONCE A DAY BY MOUTH)
     Route: 048
  5. DETROL LA [Suspect]
     Active Substance: TOLTERODINE TARTRATE
     Indication: URINARY INCONTINENCE
     Dosage: 4 MG, 1X/DAY (4MG CAPSULE ONCE A DAY BY MOUTH)
     Route: 048
  6. METOPROLOL. [Concomitant]
     Active Substance: METOPROLOL
     Dosage: 1 DF, 1X/DAY (ONE TABLET ONCE A DAY BY MOUTH)
     Route: 048

REACTIONS (4)
  - Drug ineffective [Unknown]
  - Body height decreased [Unknown]
  - Fluid retention [Unknown]
  - Eye disorder [Unknown]

NARRATIVE: CASE EVENT DATE: 2017
